FAERS Safety Report 12740102 (Version 3)
Quarter: 2016Q4

REPORT INFORMATION
  Report Type: Spontaneous
  Country: US (occurrence: US)
  Receive Date: 20160913
  Receipt Date: 20161114
  Transmission Date: 20170207
  Serious: Yes (Other)
  Sender: FDA-Public Use
  Company Number: US-ALLERGAN-1668512US

PATIENT
  Age: 59 Year
  Sex: Male
  Weight: 81.63 kg

DRUGS (2)
  1. CONDYLOX [Suspect]
     Active Substance: PODOFILOX
     Indication: ANOGENITAL WARTS
     Dosage: UNK
     Route: 061
     Dates: start: 20160329
  2. CONDYLOX [Suspect]
     Active Substance: PODOFILOX
     Indication: PAPILLOMA VIRAL INFECTION

REACTIONS (3)
  - Off label use [Unknown]
  - Papilloma viral infection [Not Recovered/Not Resolved]
  - Neoplasm malignant [Not Recovered/Not Resolved]
